FAERS Safety Report 16586381 (Version 1)
Quarter: 2019Q3

REPORT INFORMATION
  Report Type: Spontaneous
  Country: NL (occurrence: HU)
  Receive Date: 20190717
  Receipt Date: 20190717
  Transmission Date: 20191004
  Serious: Yes (Hospitalization)
  Sender: FDA-Public Use
  Company Number: HU-FRESENIUS KABI-FK201907642

PATIENT
  Age: 66 Year
  Sex: Female

DRUGS (8)
  1. METHYLPREDNISOLONE. [Suspect]
     Active Substance: METHYLPREDNISOLONE
     Route: 065
  2. METHYLPREDNISOLONE. [Suspect]
     Active Substance: METHYLPREDNISOLONE
     Indication: RASH
     Route: 051
  3. ACETYLSALICYLIC ACID [Suspect]
     Active Substance: ASPIRIN
     Indication: PRODUCT USED FOR UNKNOWN INDICATION
     Route: 065
  4. NO DRUG NAME [Suspect]
     Active Substance: UNSPECIFIED INGREDIENT
     Indication: PRODUCT USED FOR UNKNOWN INDICATION
     Route: 042
  5. CLARITHROMYCIN. [Suspect]
     Active Substance: CLARITHROMYCIN
     Indication: PRODUCT USED FOR UNKNOWN INDICATION
     Route: 048
  6. MOXIFLOXACIN (MANUFACTURER UNKNOWN) [Suspect]
     Active Substance: MOXIFLOXACIN
     Indication: PRODUCT USED FOR UNKNOWN INDICATION
     Route: 065
  7. METHYLPREDNISOLONE. [Suspect]
     Active Substance: METHYLPREDNISOLONE
     Dosage: 60 MG, DAILY
     Route: 065
  8. METHYLPREDNISOLONE. [Suspect]
     Active Substance: METHYLPREDNISOLONE
     Route: 051

REACTIONS (20)
  - Vasculitis necrotising [Unknown]
  - Blood blister [Unknown]
  - Beta 2 microglobulin increased [Unknown]
  - Necrosis [Unknown]
  - Rash [Unknown]
  - Blood lactate dehydrogenase increased [Unknown]
  - Oropharyngeal plaque [Unknown]
  - Thrombocytosis [Unknown]
  - Cholelithiasis [Unknown]
  - Disseminated intravascular coagulation [Unknown]
  - Escherichia infection [Unknown]
  - Lymphadenopathy [Unknown]
  - Blood creatine phosphokinase increased [Unknown]
  - Staphylococcal infection [Unknown]
  - Renal function test abnormal [Unknown]
  - Streptococcal infection [Unknown]
  - Blood immunoglobulin A increased [Unknown]
  - Oedema peripheral [Unknown]
  - Hiatus hernia [Unknown]
  - Purpura [Unknown]

NARRATIVE: CASE EVENT DATE: 201811
